FAERS Safety Report 4432472-0 (Version None)
Quarter: 2004Q3

REPORT INFORMATION
  Report Type: 
  Country: None (occurrence: None)
  Receive Date: 20040818
  Receipt Date: 20040802
  Transmission Date: 20050211
  Serious: Yes (Hospitalization, Other)
  Sender: FDA-Public Use
  Company Number: USA040671356

PATIENT
  Age: 64 Year
  Sex: Female
  Weight: 68 kg

DRUGS (3)
  1. HUMULIN 70/30 [Suspect]
     Indication: DIABETES MELLITUS
     Dosage: 28 U DAY
  2. HUMULIN R [Suspect]
     Indication: DIABETES MELLITUS
  3. HUMULIN U [Suspect]
     Indication: DIABETES MELLITUS

REACTIONS (20)
  - ACCIDENTAL NEEDLE STICK [None]
  - ANAEMIA [None]
  - ASTHENIA [None]
  - BLOOD GLUCOSE DECREASED [None]
  - BLOOD GLUCOSE INCREASED [None]
  - COMA [None]
  - DEPRESSED LEVEL OF CONSCIOUSNESS [None]
  - DISTURBANCE IN ATTENTION [None]
  - DIZZINESS [None]
  - DRUG INEFFECTIVE [None]
  - GLARE [None]
  - HYPERHIDROSIS [None]
  - MEDICAL DEVICE COMPLICATION [None]
  - MUSCLE CRAMP [None]
  - PHARMACEUTICAL PRODUCT COMPLAINT [None]
  - SENSATION OF HEAVINESS [None]
  - SOMNOLENCE [None]
  - STRESS SYMPTOMS [None]
  - VASCULAR OCCLUSION [None]
  - WEIGHT DECREASED [None]
